FAERS Safety Report 13175534 (Version 3)
Quarter: 2017Q1

REPORT INFORMATION
  Report Type: Spontaneous
  Country: GB (occurrence: GB)
  Receive Date: 20170201
  Receipt Date: 20170327
  Transmission Date: 20170428
  Serious: Yes (Other)
  Sender: FDA-Public Use
  Company Number: GB-PFIZER INC-2017043956

PATIENT
  Age: 71 Year
  Sex: Female

DRUGS (2)
  1. SOLUBLE ASPIRIN [Concomitant]
     Indication: RETINAL VEIN OCCLUSION
     Dosage: UNK
     Dates: start: 2015
  2. LIPITOR [Suspect]
     Active Substance: ATORVASTATIN CALCIUM
     Indication: ANGINA PECTORIS
     Dosage: 10 MG, 1X/DAY
     Dates: start: 201605, end: 201610

REACTIONS (6)
  - Mental fatigue [Recovered/Resolved]
  - Apathy [Recovered/Resolved]
  - Mental impairment [Recovered/Resolved]
  - Euphoric mood [Unknown]
  - Fatigue [Recovered/Resolved]
  - Depression [Recovered/Resolved]

NARRATIVE: CASE EVENT DATE: 201605
